FAERS Safety Report 8959742 (Version 1)
Quarter: 2012Q4

REPORT INFORMATION
  Report Type: Report from Study
  Country: US (occurrence: US)
  Receive Date: 20121212
  Receipt Date: 20121212
  Transmission Date: 20130627
  Serious: Yes (Hospitalization, Other)
  Sender: FDA-Public Use
  Company Number: PHHO2012US007105

PATIENT
  Age: 20 Year
  Sex: Female
  Weight: 78 kg

DRUGS (7)
  1. ICL670A [Suspect]
     Indication: SICKLE CELL ANAEMIA
     Dosage: 1500 mg, BID
     Route: 065
     Dates: start: 200810
  2. ICL670A [Suspect]
     Dosage: 1500 mg, BID
     Route: 065
     Dates: start: 20111212
  3. HYDROXYUREA [Concomitant]
     Indication: SICKLE CELL ANAEMIA
     Dosage: 2800 mg, BID
     Route: 048
     Dates: start: 20060210, end: 20120317
  4. DILAUDID [Concomitant]
     Indication: PAIN
     Dosage: 4.6 ug, QD
     Dates: start: 2009, end: 20120317
  5. PRIALT [Concomitant]
     Indication: PAIN
     Dosage: 5 cmg qd
     Dates: start: 2009, end: 20120317
  6. TRANSFUSIONS [Concomitant]
  7. FENTANYL [Concomitant]

REACTIONS (11)
  - Haemoglobin decreased [Unknown]
  - Sickle cell anaemia with crisis [Unknown]
  - Skin ulcer [Unknown]
  - Acute chest syndrome [Recovered/Resolved]
  - Atelectasis [Recovered/Resolved]
  - Pain [Recovered/Resolved]
  - Pain in extremity [Unknown]
  - Back pain [Unknown]
  - Pruritus [Unknown]
  - Arthralgia [Unknown]
  - Abdominal pain [Unknown]
